FAERS Safety Report 9306249 (Version 1)
Quarter: 2013Q2

REPORT INFORMATION
  Report Type: Spontaneous
  Country: CN (occurrence: CN)
  Receive Date: 20130523
  Receipt Date: 20130523
  Transmission Date: 20140414
  Serious: Yes (Other)
  Sender: FDA-Public Use
  Company Number: CN-SANOFI-AVENTIS-2013SA042536

PATIENT
  Age: 73 Year
  Sex: Male
  Weight: 62 kg

DRUGS (12)
  1. CLEXANE [Suspect]
     Indication: PROPHYLAXIS
     Route: 042
     Dates: start: 20110703, end: 20130402
  2. HERBAL PREPARATION [Concomitant]
     Route: 048
     Dates: start: 20110706
  3. INSULIN ASPART [Concomitant]
     Dosage: 12U IN THE MORNING, 6U IN THE NOON AND 14U IN THE EVENING
     Route: 042
  4. POLYSACCHARIDE-IRON COMPLEX [Concomitant]
     Route: 048
  5. FOLIC ACID [Concomitant]
     Route: 048
  6. ERYTHROPOIETIN HUMAN [Concomitant]
     Route: 058
  7. KETOSTERIL [Concomitant]
     Route: 048
  8. ALL OTHER THERAPEUTIC PRODUCTS [Concomitant]
     Route: 048
  9. NIFEDIPINE [Concomitant]
     Route: 048
  10. ISOSORBIDE MONONITRATE [Concomitant]
     Route: 048
  11. LEVOCARNITINE [Concomitant]
     Route: 040
  12. IRON SUCROSE [Concomitant]
     Dosage: ONCE EVERY 2 WEEKS
     Route: 041

REACTIONS (1)
  - Retinal haemorrhage [Not Recovered/Not Resolved]
